FAERS Safety Report 26103002 (Version 1)
Quarter: 2025Q4

REPORT INFORMATION
  Report Type: Report from Study
  Country: PK (occurrence: PK)
  Receive Date: 20251128
  Receipt Date: 20251128
  Transmission Date: 20260118
  Serious: Yes (Death)
  Sender: ROCHE
  Company Number: PK-ROCHE-10000446897

PATIENT
  Age: 62 Year
  Sex: Male

DRUGS (1)
  1. RITUXIMAB [Suspect]
     Active Substance: RITUXIMAB
     Indication: Diffuse large B-cell lymphoma
     Dosage: FREQUENCY: 3 WEEK
     Route: 042
     Dates: start: 20251021

REACTIONS (6)
  - Diarrhoea haemorrhagic [Fatal]
  - Ascites [Fatal]
  - Asphyxia [Fatal]
  - Acute kidney injury [Fatal]
  - Acute hepatic failure [Fatal]
  - Generalised oedema [Fatal]

NARRATIVE: CASE EVENT DATE: 20251110
